FAERS Safety Report 20077283 (Version 1)
Quarter: 2021Q4

REPORT INFORMATION
  Report Type: Spontaneous
  Country: US (occurrence: None)
  Receive Date: 20211116
  Receipt Date: 20211116
  Transmission Date: 20220303
  Serious: Yes (Death, Other)
  Sender: FDA-Public Use
  Company Number: None

PATIENT
  Age: 37 Year
  Sex: Male
  Weight: 94.5 kg

DRUGS (1)
  1. INVEGA SUSTENNA [Suspect]
     Active Substance: PALIPERIDONE PALMITATE
     Indication: Schizophrenia
     Dates: start: 20210604, end: 20211112

REACTIONS (6)
  - Tardive dyskinesia [None]
  - Weight increased [None]
  - Gynaecomastia [None]
  - Anxiety [None]
  - Insomnia [None]
  - Emotional disorder [None]

NARRATIVE: CASE EVENT DATE: 20211112
